FAERS Safety Report 5045508-3 (Version None)
Quarter: 2006Q3

REPORT INFORMATION
  Report Type: 
  Country: None (occurrence: None)
  Receive Date: 20060707
  Receipt Date: 20060628
  Transmission Date: 20061208
  Serious: No
  Sender: FDA-Public Use
  Company Number: BR-JNJFOC-20060604793

PATIENT
  Age: 82 Year
  Sex: Male
  Weight: 59 kg

DRUGS (4)
  1. IMOSEC [Suspect]
     Indication: FAECAL INCONTINENCE
     Route: 048
  2. IMOSEC [Suspect]
     Indication: PROPHYLAXIS OF NAUSEA AND VOMITING
     Route: 048
  3. CHEMOTHERAPY [Concomitant]
     Indication: COLON CANCER
  4. HOMEOPATHIC FORMULATON [Concomitant]
     Indication: DIARRHOEA
     Route: 048

REACTIONS (3)
  - FLATULENCE [None]
  - NASAL DISCOMFORT [None]
  - SOMNOLENCE [None]
